FAERS Safety Report 25438650 (Version 1)
Quarter: 2025Q2

REPORT INFORMATION
  Report Type: Spontaneous
  Country: US (occurrence: US)
  Receive Date: 20250616
  Receipt Date: 20250616
  Transmission Date: 20250717
  Serious: No
  Sender: SANOFI AVENTIS
  Company Number: US-SA-2025SA169167

PATIENT
  Sex: Female
  Weight: 54.55 kg

DRUGS (16)
  1. DUPIXENT [Suspect]
     Active Substance: DUPILUMAB
     Indication: Dermatitis atopic
     Dosage: 300 MG, QOW
     Route: 058
  2. PANTOPRAZOLE SODIUM [Concomitant]
     Active Substance: PANTOPRAZOLE SODIUM
  3. NYSTATIN [Concomitant]
     Active Substance: NYSTATIN
  4. MEGESTROL ACETATE [Concomitant]
     Active Substance: MEGESTROL ACETATE
  5. HYDROXYZINE HYDROCHLORIDE [Concomitant]
     Active Substance: HYDROXYZINE HYDROCHLORIDE
  6. DESOXIMETASONE [Concomitant]
     Active Substance: DESOXIMETASONE
  7. NORVASC [Concomitant]
     Active Substance: AMLODIPINE BESYLATE
  8. VALTREX [Concomitant]
     Active Substance: VALACYCLOVIR HYDROCHLORIDE
  9. ALLOPURINOL [Concomitant]
     Active Substance: ALLOPURINOL
  10. LYRICA [Concomitant]
     Active Substance: PREGABALIN
  11. OXYGEN [Concomitant]
     Active Substance: OXYGEN
  12. UPTRAVI [Concomitant]
     Active Substance: SELEXIPAG
  13. DIGOXIN [Concomitant]
     Active Substance: DIGOXIN
  14. TADALAFIL [Concomitant]
     Active Substance: TADALAFIL
  15. PFIZER-BIONTECH COVID-19 VACCINE [Concomitant]
     Active Substance: TOZINAMERAN
  16. OPSUMIT [Concomitant]
     Active Substance: MACITENTAN

REACTIONS (4)
  - Productive cough [Recovered/Resolved]
  - Taste disorder [Unknown]
  - Candida infection [Unknown]
  - Headache [Recovered/Resolved]
